FAERS Safety Report 24743918 (Version 1)
Quarter: 2024Q4

REPORT INFORMATION
  Report Type: Spontaneous
  Country: BR (occurrence: BR)
  Receive Date: 20241217
  Receipt Date: 20241217
  Transmission Date: 20250114
  Serious: Yes (Other)
  Sender: AMERICAN REGENT
  Company Number: BR-AMERICAN REGENT INC-2024004710

PATIENT
  Sex: Female

DRUGS (1)
  1. FERINJECT [Suspect]
     Active Substance: FERRIC CARBOXYMALTOSE
     Indication: Anaemia
     Dosage: UNK
     Dates: start: 202406, end: 202406

REACTIONS (2)
  - Drug ineffective [Unknown]
  - Asthenia [Unknown]

NARRATIVE: CASE EVENT DATE: 20241001
